FAERS Safety Report 19306211 (Version 1)
Quarter: 2021Q2

REPORT INFORMATION
  Report Type: Spontaneous
  Country: US (occurrence: US)
  Receive Date: 20210525
  Receipt Date: 20210525
  Transmission Date: 20210717
  Serious: Yes (Hospitalization)
  Sender: FDA-Public Use
  Company Number: US-MYLANLABS-2021M1029088

PATIENT
  Age: 57 Year
  Sex: Female

DRUGS (1)
  1. ESTRADIOL. [Suspect]
     Active Substance: ESTRADIOL
     Indication: HORMONE THERAPY
     Dosage: UNK
     Route: 067

REACTIONS (6)
  - Septic embolus [Recovering/Resolving]
  - Multiple organ dysfunction syndrome [Recovering/Resolving]
  - Staphylococcal infection [Recovering/Resolving]
  - Staphylococcal bacteraemia [Recovering/Resolving]
  - Endocarditis [Recovering/Resolving]
  - Sepsis [Recovering/Resolving]
